FAERS Safety Report 8539645-6 (Version None)
Quarter: 2012Q3

REPORT INFORMATION
  Report Type: 
  Country: None (occurrence: None)
  Receive Date: 20120726
  Receipt Date: 20120712
  Transmission Date: 20120928
  Serious: No
  Sender: FDA-Public Use
  Company Number: US-ASTRAZENECA-2012SE48825

PATIENT
  Age: 44 Year
  Sex: Female
  Weight: 77.1 kg

DRUGS (5)
  1. TYLENOL [Concomitant]
  2. IRON PILL [Concomitant]
  3. ANTIBIOTIC [Concomitant]
  4. NEXIUM [Suspect]
     Indication: DYSPEPSIA
     Route: 048
     Dates: start: 20120711
  5. ASCORBIC ACID [Concomitant]

REACTIONS (2)
  - PHARYNGEAL EXUDATE [None]
  - PHARYNGEAL ERYTHEMA [None]
